FAERS Safety Report 5087701-X (Version None)
Quarter: 2006Q3

REPORT INFORMATION
  Report Type: 
  Country: None (occurrence: None)
  Receive Date: 20060821
  Receipt Date: 20060810
  Transmission Date: 20061208
  Serious: Yes (Other)
  Sender: FDA-Public Use
  Company Number: 2006097215

PATIENT
  Age: 63 Year
  Sex: Male
  Weight: 105.2345 kg

DRUGS (13)
  1. LIPITOR [Suspect]
     Indication: BLOOD CHOLESTEROL INCREASED
  2. ISMN - SLOW RELEASE (ISOSORBIDE MONONITRATE) [Concomitant]
  3. TOPROL-XL [Concomitant]
  4. LANTUS [Concomitant]
  5. GLIPIZIDE [Concomitant]
  6. PLAVIX [Concomitant]
  7. TRICOR [Concomitant]
  8. FUROSEMIDE [Concomitant]
  9. AVAPRO [Concomitant]
  10. ASPIRIN [Concomitant]
  11. FOLIC ACID [Concomitant]
  12. ALL OTHER THERAPEUTIC PRODUCTS [Concomitant]
  13. SENNA [Concomitant]

REACTIONS (1)
  - MUSCLE SPASMS [None]
